FAERS Safety Report 11757750 (Version 3)
Quarter: 2015Q4

REPORT INFORMATION
  Report Type: Spontaneous
  Country: GB (occurrence: GB)
  Receive Date: 20151120
  Receipt Date: 20151204
  Transmission Date: 20160304
  Serious: Yes (Hospitalization)
  Sender: FDA-Public Use
  Company Number: GB-BIOGENIDEC-2015BI153274

PATIENT
  Sex: Female

DRUGS (1)
  1. TYSABRI [Suspect]
     Active Substance: NATALIZUMAB
     Indication: PRODUCT USED FOR UNKNOWN INDICATION

REACTIONS (2)
  - Neuromyelitis optica [Unknown]
  - Progressive multifocal leukoencephalopathy [Unknown]
